FAERS Safety Report 5076831-4 (Version None)
Quarter: 2006Q3

REPORT INFORMATION
  Report Type: 
  Country: None (occurrence: None)
  Receive Date: 20060810
  Receipt Date: 20060731
  Transmission Date: 20061208
  Serious: Yes (Hospitalization)
  Sender: FDA-Public Use
  Company Number: US-BRISTOL-MYERS SQUIBB COMPANY-13460241

PATIENT
  Age: 40 Year
  Sex: Female

DRUGS (8)
  1. ORENCIA [Suspect]
     Indication: RHEUMATOID ARTHRITIS
     Route: 042
     Dates: start: 20051024, end: 20060608
  2. PREMARIN [Concomitant]
     Dates: start: 19980512
  3. MOBIC [Concomitant]
     Dates: start: 20050411
  4. LORCET-HD [Concomitant]
     Dates: start: 19971110
  5. CARDIOTEK [Concomitant]
     Dates: start: 20060601
  6. SLOW FE [Concomitant]
     Indication: ANAEMIA
     Dates: start: 20050101, end: 20060701
  7. PREDNISONE [Concomitant]
     Route: 048
     Dates: start: 19950301
  8. MAGIC MOUTHWASH [Concomitant]
     Dates: start: 20060512

REACTIONS (2)
  - PHARYNGITIS [None]
  - STOMATITIS [None]
